FAERS Safety Report 19021800 (Version 1)
Quarter: 2021Q1

REPORT INFORMATION
  Report Type: Report from Study
  Country: GB (occurrence: GB)
  Receive Date: 20210317
  Receipt Date: 20210317
  Transmission Date: 20210420
  Serious: Yes (Hospitalization)
  Sender: FDA-Public Use
  Company Number: GB-BAYER-2021-103008

PATIENT
  Age: 54 Year
  Sex: Male
  Weight: 100 kg

DRUGS (5)
  1. FRESH FROZEN PLASMA [Concomitant]
     Active Substance: HUMAN PLASMA
     Indication: PRODUCT USED FOR UNKNOWN INDICATION
     Dosage: UNK
     Route: 065
     Dates: start: 20171006, end: 201710
  2. PLATELETS [Concomitant]
     Active Substance: HUMAN PLATELET, ALLOGENIC
     Indication: PRODUCT USED FOR UNKNOWN INDICATION
     Dosage: UNK
     Route: 065
     Dates: start: 20171006, end: 201710
  3. ACETYLSALICYLIC ACID [Concomitant]
     Active Substance: ASPIRIN
     Indication: ANTICOAGULANT THERAPY
     Dosage: UNK
     Route: 065
  4. HEPARIN [Concomitant]
     Active Substance: HEPARIN SODIUM
     Indication: ANTICOAGULANT THERAPY
     Dosage: 65000 INTERNATIONAL UNIT
     Route: 042
     Dates: start: 20171006, end: 20171006
  5. APROTININ 10,000 KIU/ML INJECTION BP (APROTININ) [Suspect]
     Active Substance: APROTININ
     Indication: AORTIC DISSECTION
     Dosage: 500 MILLILITRE
     Route: 042
     Dates: start: 20171006, end: 20171006

REACTIONS (4)
  - Off label use [None]
  - Product use in unapproved indication [Recovered/Resolved]
  - Multiple organ dysfunction syndrome [Recovered/Resolved]
  - Blood creatinine increased [Recovered/Resolved]

NARRATIVE: CASE EVENT DATE: 20171006
